FAERS Safety Report 5859824-6 (Version None)
Quarter: 2008Q3

REPORT INFORMATION
  Report Type: 
  Country: None (occurrence: None)
  Receive Date: 20080827
  Receipt Date: 20080819
  Transmission Date: 20090109
  Serious: Yes (Death)
  Sender: FDA-Public Use
  Company Number: TW-MERCK-0808USA03756

PATIENT
  Age: 43 Year
  Sex: Male

DRUGS (3)
  1. DECADRON SRC [Suspect]
     Indication: PLASMACYTOMA
     Route: 048
  2. CYCLOPHOSPHAMIDE [Concomitant]
     Route: 065
  3. VINCRISTINE SULFATE [Concomitant]
     Route: 065

REACTIONS (2)
  - DRUG INEFFECTIVE [None]
  - PLASMACYTOMA [None]
